FAERS Safety Report 5288056-8 (Version None)
Quarter: 2007Q1

REPORT INFORMATION
  Report Type: 
  Country: None (occurrence: None)
  Receive Date: 20070116
  Receipt Date: 20061018
  Transmission Date: 20070707
  Serious: No
  Sender: FDA-Public Use
  Company Number: 2006SP003734

PATIENT
  Age: 76 Year
  Sex: Female
  Weight: 66.2252 kg

DRUGS (3)
  1. LUNESTA [Suspect]
     Indication: INSOMNIA
     Dosage: 3 MG; 1X; ORAL
     Route: 048
     Dates: start: 20061017, end: 20061017
  2. VALIUM [Concomitant]
  3. ATENOLOL [Concomitant]

REACTIONS (1)
  - INSOMNIA [None]
